FAERS Safety Report 10177481 (Version 3)
Quarter: 2014Q2

REPORT INFORMATION
  Report Type: Spontaneous
  Country: US (occurrence: IT)
  Receive Date: 20140516
  Receipt Date: 20140623
  Transmission Date: 20141212
  Serious: Yes (Death, Other)
  Sender: FDA-Public Use
  Company Number: 2014SP002608

PATIENT
  Age: 77 Year
  Sex: Male
  Weight: 62 kg

DRUGS (9)
  1. CARBOPLATIN [Suspect]
     Indication: LUNG ADENOCARCINOMA STAGE IV
     Route: 042
     Dates: start: 20140123, end: 20140411
  2. PEMETREXED [Suspect]
     Indication: LUNG ADENOCARCINOMA STAGE IV
     Route: 042
     Dates: start: 20140123, end: 20140411
  3. CYANOCOBALAMIN [Concomitant]
  4. CARDIOASPIRIN [Concomitant]
  5. FOLIC ACID [Concomitant]
  6. AMLODIPINE MALEATE [Concomitant]
  7. METOPROLOL [Concomitant]
  8. ATORVASTATIN CALCIUM TRIHYDRATE [Concomitant]
  9. RAMIPRIL [Concomitant]

REACTIONS (6)
  - Anaemia [Fatal]
  - Confusional state [Fatal]
  - Dyspnoea [Fatal]
  - Febrile neutropenia [Fatal]
  - Thrombocytopenia [Fatal]
  - Leukopenia [Unknown]
